FAERS Safety Report 14844983 (Version 2)
Quarter: 2018Q2

REPORT INFORMATION
  Report Type: Spontaneous
  Country: FR (occurrence: FR)
  Receive Date: 20180504
  Receipt Date: 20180614
  Transmission Date: 20180711
  Serious: Yes (Life-Threatening, Hospitalization)
  Sender: FDA-Public Use
  Company Number: FR-TEVA-2018-FR-889426

PATIENT
  Age: 87 Year
  Sex: Male
  Weight: 90 kg

DRUGS (15)
  1. PANTOPRAZOLE [Concomitant]
     Active Substance: PANTOPRAZOLE
     Dosage: 20 MILLIGRAM DAILY;
     Route: 048
  2. COUMADINE [Concomitant]
     Active Substance: WARFARIN SODIUM
     Dosage: 2 MILLIGRAM DAILY;
     Route: 048
     Dates: start: 2016
  3. STILNOX [Concomitant]
     Active Substance: ZOLPIDEM TARTRATE
     Dosage: 10 MILLIGRAM DAILY;
     Route: 048
     Dates: start: 20180120
  4. HUMALOG [Concomitant]
     Active Substance: INSULIN LISPRO
     Dosage: 20 IU (INTERNATIONAL UNIT) DAILY;
     Route: 058
     Dates: start: 2010
  5. LASILIX [Suspect]
     Active Substance: FUROSEMIDE
     Dosage: 240 MILLIGRAM DAILY; TREATMENT TAKEN SINCE 2016 TO 40 MG 3X/D
     Route: 040
     Dates: start: 20180126, end: 20180129
  6. ISOPHANE INSULIN [Concomitant]
     Active Substance: INSULIN NOS
     Dosage: 35 IU (INTERNATIONAL UNIT) DAILY;
     Route: 058
     Dates: start: 2010
  7. MIRTAZAPINE. [Concomitant]
     Active Substance: MIRTAZAPINE
     Dosage: 20 MILLIGRAM DAILY;
     Route: 048
     Dates: start: 20180110
  8. MACROGOL 4000 MYLAN [Concomitant]
     Dosage: 10 MILLIGRAM DAILY;
     Dates: start: 2016
  9. ACTISKENAN [Concomitant]
     Active Substance: MORPHINE SULFATE
     Dosage: 5 MILLIGRAM DAILY;
     Route: 058
     Dates: start: 20180119
  10. AMOXICILLINE [Suspect]
     Active Substance: AMOXICILLIN
     Dosage: 2 GRAM DAILY;
     Route: 048
     Dates: start: 20180120, end: 20180126
  11. KEPPRA [Concomitant]
     Active Substance: LEVETIRACETAM
     Dosage: 500 MILLIGRAM DAILY;
     Route: 048
     Dates: start: 20180112
  12. VERSATIS [Concomitant]
     Active Substance: LIDOCAINE
     Dosage: 5 PERCENT DAILY;
     Route: 003
     Dates: start: 20180119
  13. CEFTRIAXONE SODIQUE [Concomitant]
     Active Substance: CEFTRIAXONE SODIUM
     Dosage: 2 GRAM DAILY;
     Route: 041
     Dates: start: 20180126
  14. PERINDOPRIL/INDAPAMIDE MYLAN 4 MG/1,25 MG,COMPRESSED [Concomitant]
     Route: 048
     Dates: start: 2016, end: 20180125
  15. CORDARONE [Concomitant]
     Active Substance: AMIODARONE HYDROCHLORIDE
     Dosage: 200 MILLIGRAM DAILY;
     Route: 048
     Dates: start: 2010

REACTIONS (1)
  - Acute kidney injury [Recovering/Resolving]
